FAERS Safety Report 10623405 (Version 1)
Quarter: 2014Q4

REPORT INFORMATION
  Report Type: Spontaneous
  Country: US (occurrence: US)
  Receive Date: 20141203
  Receipt Date: 20141203
  Transmission Date: 20150529
  Serious: Yes (Other)
  Sender: FDA-Public Use
  Company Number: US-BAYER-2014-177710

PATIENT
  Sex: Male

DRUGS (1)
  1. ALKA-SELTZER PLUS COLD + COUGH FORMULA CITRUS [Suspect]
     Active Substance: ASPIRIN\CHLORPHENIRAMINE MALEATE\DEXTROMETHORPHAN HYDROBROMIDE\PHENYLEPHRINE BITARTRATE
     Dosage: UNK DF, UNK
     Route: 048

REACTIONS (1)
  - Coeliac disease [Unknown]
